FAERS Safety Report 18834426 (Version 3)
Quarter: 2021Q1

REPORT INFORMATION
  Report Type: Report from Study
  Country: MX (occurrence: MX)
  Receive Date: 20210203
  Receipt Date: 20210217
  Transmission Date: 20210419
  Serious: Yes (Hospitalization, Other)
  Sender: FDA-Public Use
  Company Number: MX-TAKEDA-MX201712103

PATIENT
  Age: 16 Year
  Sex: Male
  Weight: 24 kg

DRUGS (9)
  1. MAGNESIUM VALPROATE [Concomitant]
     Active Substance: VALPROATE MAGNESIUM
     Indication: PRODUCT USED FOR UNKNOWN INDICATION
     Dosage: 2.5 ML, 2X/DAY:BID (EVERY 12 HOURS)
     Route: 048
  2. VALPROATE SODIUM. [Concomitant]
     Active Substance: VALPROATE SODIUM
     Dosage: UNK
     Route: 065
  3. IDURSULFASE [Suspect]
     Active Substance: IDURSULFASE
     Indication: MUCOPOLYSACCHARIDOSIS II
     Dosage: 12 MILLIGRAM (2 VIALS), PRN
     Route: 041
  4. IDURSULFASE [Suspect]
     Active Substance: IDURSULFASE
     Indication: MUCOPOLYSACCHARIDOSIS II
     Dosage: 6MG/3ML, 1/WEEK
     Route: 042
     Dates: start: 20140506
  5. KEPPRA [Concomitant]
     Active Substance: LEVETIRACETAM
     Indication: PRODUCT USED FOR UNKNOWN INDICATION
     Dosage: 7 ML, 2X/DAY:BID (EVERY 12 HOURS)
     Route: 048
  6. LEVETIRACETAM. [Concomitant]
     Active Substance: LEVETIRACETAM
     Indication: ANTICONVULSANT DRUG LEVEL
     Dosage: 3 MILLILITER, 12 HOURS
     Route: 050
  7. TOPIRAMATE. [Concomitant]
     Active Substance: TOPIRAMATE
     Indication: PRODUCT USED FOR UNKNOWN INDICATION
     Dosage: 50 ML, 2X/DAY:BID (EVERY 12 HOURS)
     Route: 048
  8. SENNOSIDES. [Concomitant]
     Active Substance: SENNOSIDES
     Indication: DRUG ABUSE
     Dosage: 8.6 MILLIGRAM
     Route: 050
  9. TOPIRAMATE. [Concomitant]
     Active Substance: TOPIRAMATE
     Dosage: 150 MILLIGRAM, EVERY 12 HOURS
     Route: 050

REACTIONS (9)
  - Product availability issue [Not Recovered/Not Resolved]
  - Underweight [Unknown]
  - Mastication disorder [Unknown]
  - Pyrexia [Recovering/Resolving]
  - Dysphagia [Unknown]
  - Dehydration [Unknown]
  - Disease progression [Unknown]
  - Seizure [Recovering/Resolving]
  - SARS-CoV-2 test positive [Recovering/Resolving]

NARRATIVE: CASE EVENT DATE: 20210118
